FAERS Safety Report 25199398 (Version 2)
Quarter: 2025Q2

REPORT INFORMATION
  Report Type: Spontaneous
  Country: CH (occurrence: CH)
  Receive Date: 20250415
  Receipt Date: 20250425
  Transmission Date: 20250716
  Serious: Yes (Other)
  Sender: MERCK SHARP & DOHME LLC
  Company Number: CH-009507513-2273997

PATIENT
  Age: 25 Year

DRUGS (1)
  1. PREVYMIS [Suspect]
     Active Substance: LETERMOVIR
     Indication: Prophylaxis
     Dosage: 480 MG ONCE DAILY
     Route: 048
     Dates: start: 202404, end: 202406

REACTIONS (2)
  - Lymphoma [Unknown]
  - Recurrent cancer [Unknown]
